FAERS Safety Report 7197459-6 (Version None)
Quarter: 2010Q4

REPORT INFORMATION
  Report Type: 
  Country: None (occurrence: None)
  Receive Date: 20101208
  Receipt Date: 20101130
  Transmission Date: 20110411
  Serious: Yes (Hospitalization)
  Sender: FDA-Public Use
  Company Number: WAES 1006USA03143

PATIENT
  Age: 67 Year
  Sex: Male

DRUGS (11)
  1. ZETIA [Suspect]
     Indication: HYPERCHOLESTEROLAEMIA
     Dosage: 10 MG/DAILY PO
     Route: 048
     Dates: start: 20080520, end: 20090617
  2. AZOSEMIDE [Concomitant]
  3. BENZBROMARONE [Concomitant]
  4. CARVEDILOL [Concomitant]
  5. FUROSEMIDE [Concomitant]
  6. METILDOGOXIN [Concomitant]
  7. PIRETANIDE [Concomitant]
  8. ROSUVASTATIN CALCIUM [Concomitant]
  9. TICLOPIDINE HYDROCHLORIDE [Concomitant]
  10. VALSARTAN [Concomitant]
  11. WARFARIN SODIUM [Concomitant]

REACTIONS (3)
  - CHOLECYSTITIS [None]
  - COLITIS [None]
  - HEPATITIS ACUTE [None]
